FAERS Safety Report 9034752 (Version 1)
Quarter: 2013Q1

REPORT INFORMATION
  Report Type: Spontaneous
  Country: TW (occurrence: None)
  Receive Date: 20130115
  Receipt Date: 20130115
  Transmission Date: 20140127
  Serious: Yes (Other)
  Sender: FDA-Public Use
  Company Number: AXC-2013-000004

PATIENT
  Sex: 0

DRUGS (2)
  1. SUCRALFATE [Suspect]
     Indication: STRESS ULCER
     Dosage: UNK,  UNKNOWN  UNK?UNKNOWN  UNK
  2. SUCRALFATE [Suspect]
     Indication: PROPHYLAXIS
     Dosage: UNK,  UNKNOWN  UNK?UNKNOWN  UNK

REACTIONS (1)
  - Pneumonia [None]
